FAERS Safety Report 7470779-3 (Version None)
Quarter: 2011Q2

REPORT INFORMATION
  Report Type: 
  Country: None (occurrence: None)
  Receive Date: 20110510
  Receipt Date: 20110428
  Transmission Date: 20111010
  Serious: Yes (Hospitalization)
  Sender: FDA-Public Use
  Company Number: FR-PFIZER INC-2011096802

PATIENT
  Age: 72 Year
  Sex: Male

DRUGS (9)
  1. LOVENOX [Suspect]
  2. ALLOPURINOL [Suspect]
     Dosage: 300 MG, 1X/DAY
     Route: 048
  3. FUCIDINE CAP [Suspect]
     Indication: DEVICE RELATED INFECTION
     Dosage: 1500 MG DAILY
     Route: 048
  4. ALLOPURINOL [Suspect]
     Dosage: 100 MG, 2X/DAY
     Route: 048
  5. COLCHICINE [Suspect]
     Dosage: 1 DF, 1X/DAY
     Route: 048
     Dates: end: 20110411
  6. PANTOPRAZOLE [Suspect]
     Dosage: UNK
     Dates: end: 20110411
  7. OLMESARTAN MEDOXOMIL [Suspect]
     Indication: HYPERTENSION
     Dosage: 40 MG, UNK
     Route: 048
     Dates: end: 20110411
  8. CLINDAMYCIN HCL [Suspect]
     Indication: DEVICE RELATED INFECTION
     Dosage: 225 MG DAILY
     Route: 048
  9. ALFUZOSIN HCL [Suspect]

REACTIONS (1)
  - RENAL FAILURE ACUTE [None]
